FAERS Safety Report 8830587 (Version 1)
Quarter: 2012Q4

REPORT INFORMATION
  Report Type: Report from Study
  Country: DE (occurrence: DE)
  Receive Date: 20121008
  Receipt Date: 20121008
  Transmission Date: 20130627
  Serious: Yes (Hospitalization, Disabling)
  Sender: FDA-Public Use
  Company Number: DE-UCBSA-039256

PATIENT
  Sex: Male

DRUGS (14)
  1. CERTOLIZUMAB PEGOL [Suspect]
     Indication: RHEUMATOID ARTHRITIS
     Dosage: DOSE: 200 MG
     Route: 058
     Dates: start: 20100427, end: 20101110
  2. PREDNISOLON [Concomitant]
     Indication: RHEUMATOID ARTHRITIS
     Route: 048
     Dates: start: 20050315
  3. METHOTREXATE [Concomitant]
     Dosage: 15.0
  4. METHOTREXATE [Concomitant]
     Dosage: 10.0
  5. METHOTREXATE [Concomitant]
     Dosage: 20.0
  6. METHOTREXATE [Concomitant]
     Dosage: 25.0
  7. ASS [Concomitant]
     Indication: CORONARY ARTERY DISEASE
     Dosage: 100 (1x1)
     Dates: start: 1993
  8. ASS [Concomitant]
     Indication: CORONARY ARTERY DISEASE
     Route: 048
     Dates: start: 2004
  9. FOSAMAX [Concomitant]
     Indication: OSTEOPOROSIS
     Route: 048
     Dates: start: 200412
  10. CALCILAC KT [Concomitant]
     Indication: OSTEOPOROSIS
     Dosage: CALCIUM: 1000 MG; CHOLECALCIFEROL: 800 IE
     Route: 048
     Dates: start: 200412
  11. RAMIPRIL [Concomitant]
     Indication: HYPERTENSION
     Route: 048
     Dates: start: 2005
  12. INEGY [Concomitant]
     Indication: HYPERCHOLESTEROLAEMIA
     Dosage: EZETIMIB: 10 MG; SIMVASTATIN: 20 MG
     Route: 048
     Dates: start: 20051108
  13. CARVEDILOL [Concomitant]
     Indication: HYPERTENSION
     Route: 048
     Dates: start: 2005
  14. PANTOZOL [Concomitant]
     Indication: GASTRITIS PROPHYLAXIS
     Route: 048
     Dates: start: 20051108

REACTIONS (3)
  - Cerebrovascular accident [Not Recovered/Not Resolved]
  - Paralysis flaccid [Not Recovered/Not Resolved]
  - Facial paresis [Not Recovered/Not Resolved]
